FAERS Safety Report 4355332-2 (Version None)
Quarter: 2004Q2

REPORT INFORMATION
  Report Type: 
  Country: None (occurrence: None)
  Receive Date: 20040504
  Receipt Date: 20031106
  Transmission Date: 20050107
  Serious: Yes (Other)
  Sender: FDA-Public Use
  Company Number: 200306199

PATIENT
  Age: 67 Year
  Sex: Male

DRUGS (1)
  1. VERMOX [Suspect]
     Indication: GIARDIASIS
     Dosage: PO
     Route: 048

REACTIONS (1)
  - HAEMATEMESIS [None]
